FAERS Safety Report 24253827 (Version 1)
Quarter: 2024Q3

REPORT INFORMATION
  Report Type: Spontaneous
  Country: CN (occurrence: CN)
  Receive Date: 20240827
  Receipt Date: 20240827
  Transmission Date: 20241017
  Serious: Yes (Other)
  Sender: SANOFI AVENTIS
  Company Number: CN-SA-SAC20240819001219

PATIENT
  Age: 87 Year
  Sex: Male
  Weight: 65 kg

DRUGS (1)
  1. ZOLPIDEM TARTRATE [Suspect]
     Active Substance: ZOLPIDEM TARTRATE
     Indication: Insomnia
     Dosage: 10 MG, QD
     Route: 048
     Dates: start: 20240713, end: 20240803

REACTIONS (3)
  - Restlessness [Recovered/Resolved]
  - Hallucination [Recovered/Resolved]
  - Logorrhoea [Recovered/Resolved]

NARRATIVE: CASE EVENT DATE: 20240802
